FAERS Safety Report 17985837 (Version 2)
Quarter: 2020Q3

REPORT INFORMATION
  Report Type: Spontaneous
  Country: SK (occurrence: SK)
  Receive Date: 20200706
  Receipt Date: 20200922
  Transmission Date: 20201103
  Serious: Yes (Life-Threatening, Hospitalization)
  Sender: FDA-Public Use
  Company Number: SK-SAMSUNG BIOEPIS-SB-2020-21407

PATIENT
  Age: 72 Year
  Sex: Female

DRUGS (1)
  1. ETANERCEPT [Suspect]
     Active Substance: ETANERCEPT
     Indication: RHEUMATOID ARTHRITIS
     Dosage: UNKNOWN
     Route: 065

REACTIONS (5)
  - Sepsis [Recovering/Resolving]
  - Intervertebral discitis [Recovering/Resolving]
  - Abscess [Recovering/Resolving]
  - Erysipelas [Recovering/Resolving]
  - Enterocolitis bacterial [Recovering/Resolving]
